FAERS Safety Report 26158892 (Version 1)
Quarter: 2025Q4

REPORT INFORMATION
  Report Type: Spontaneous
  Country: JP (occurrence: JP)
  Receive Date: 20251215
  Receipt Date: 20251215
  Transmission Date: 20260117
  Serious: Yes (Other)
  Sender: NOVARTIS
  Company Number: JP-002147023-NVSJ2025JP011977

PATIENT
  Age: 70 Year
  Sex: Male

DRUGS (1)
  1. SACUBITRIL\VALSARTAN [Suspect]
     Active Substance: SACUBITRIL\VALSARTAN
     Indication: Hypertension
     Dosage: UNK
     Route: 048

REACTIONS (5)
  - Angioedema [Recovering/Resolving]
  - Oedema peripheral [Unknown]
  - Skin ulcer [Recovering/Resolving]
  - Blister [Unknown]
  - Pain [Unknown]
